FAERS Safety Report 12173401 (Version 6)
Quarter: 2017Q4

REPORT INFORMATION
  Report Type: Spontaneous
  Country: BR (occurrence: BR)
  Receive Date: 20160311
  Receipt Date: 20171004
  Transmission Date: 20180320
  Serious: Yes (Hospitalization, Other)
  Sender: FDA-Public Use
  Company Number: BR-ELI_LILLY_AND_COMPANY-BR201603000352

PATIENT
  Age: 75 Year
  Sex: Male
  Weight: 122 kg

DRUGS (20)
  1. HUMALOG [Suspect]
     Active Substance: INSULIN LISPRO
     Indication: TYPE 2 DIABETES MELLITUS
     Dosage: 50 IU, TID
     Route: 065
  2. PLAVIX [Concomitant]
     Active Substance: CLOPIDOGREL BISULFATE
     Indication: CARDIAC DISORDER
     Dosage: 75 MG, QD
     Route: 065
     Dates: start: 2013
  3. HUMULIN N [Suspect]
     Active Substance: INSULIN HUMAN
     Indication: TYPE 2 DIABETES MELLITUS
     Dosage: UNK, UNKNOWN
     Route: 065
  4. HUMALOG [Suspect]
     Active Substance: INSULIN LISPRO
     Dosage: 10 IU, TID
     Route: 058
  5. GLIFAGE [Suspect]
     Active Substance: METFORMIN HYDROCHLORIDE
     Dosage: UNK, BID
     Route: 065
     Dates: start: 2013
  6. SELOZOK [Concomitant]
     Active Substance: METOPROLOL SUCCINATE
     Indication: PRODUCT USED FOR UNKNOWN INDICATION
     Dosage: 25 MG, QD
     Route: 065
  7. HUMALOG [Suspect]
     Active Substance: INSULIN LISPRO
     Dosage: 50 IU, TID
     Route: 065
  8. HUMULIN N [Suspect]
     Active Substance: INSULIN HUMAN
     Dosage: 150 IU, UNKNOWN
     Route: 065
  9. HUMALOG [Suspect]
     Active Substance: INSULIN LISPRO
     Dosage: 50 IU, TID
     Route: 058
     Dates: start: 201607
  10. HUMALOG [Suspect]
     Active Substance: INSULIN LISPRO
     Indication: TYPE 2 DIABETES MELLITUS
     Dosage: UNK UNK, UNKNOWN
     Route: 065
  11. HUMULIN N [Suspect]
     Active Substance: INSULIN HUMAN
     Dosage: UNK, TID
     Route: 058
     Dates: start: 20160715
  12. GLIFAGE [Suspect]
     Active Substance: METFORMIN HYDROCHLORIDE
     Indication: PRODUCT USED FOR UNKNOWN INDICATION
     Dosage: UNK, TID
     Route: 065
     Dates: end: 2013
  13. HUMALOG [Suspect]
     Active Substance: INSULIN LISPRO
     Dosage: 50 IU, TID
     Route: 065
  14. HUMULIN N [Suspect]
     Active Substance: INSULIN HUMAN
     Dosage: 50 IU, TID
     Route: 065
     Dates: start: 2013
  15. NOVAX [Concomitant]
     Active Substance: AMOXICILLIN
     Indication: HYPERTENSION
     Dosage: 5 MG, BID
     Route: 065
  16. LOSARTAN. [Concomitant]
     Active Substance: LOSARTAN
     Indication: PRODUCT USED FOR UNKNOWN INDICATION
     Dosage: 50 MG, BID
     Route: 065
  17. NORVASC [Concomitant]
     Active Substance: AMLODIPINE BESYLATE
     Indication: PRODUCT USED FOR UNKNOWN INDICATION
     Dosage: UNK, UNKNOWN
     Route: 065
  18. HUMULIN N [Suspect]
     Active Substance: INSULIN HUMAN
     Dosage: 60 IU, TID
     Route: 058
     Dates: start: 201607
  19. HUMULIN N [Suspect]
     Active Substance: INSULIN HUMAN
     Dosage: UNK, TID
     Route: 058
  20. HUMALOG [Suspect]
     Active Substance: INSULIN LISPRO
     Dosage: 10 IU, TID
     Route: 058
     Dates: start: 20160715

REACTIONS (17)
  - Loose tooth [Unknown]
  - Drug ineffective [Recovered/Resolved]
  - Drug ineffective [Unknown]
  - Underdose [Unknown]
  - Oral infection [Recovered/Resolved]
  - Cardiac disorder [Not Recovered/Not Resolved]
  - Product storage error [Unknown]
  - Drug dose omission [Unknown]
  - Hypoglycaemia [Recovered/Resolved]
  - Diarrhoea [Recovered/Resolved]
  - Blood glucose increased [Recovered/Resolved]
  - Visual impairment [Unknown]
  - Blood glucose increased [Unknown]
  - Blood glucose increased [Recovered/Resolved]
  - Insulin resistance [Not Recovered/Not Resolved]
  - Pneumonia [Unknown]
  - Blood glucose decreased [Unknown]

NARRATIVE: CASE EVENT DATE: 2013
